FAERS Safety Report 7702415 (Version 7)
Quarter: 2012Q4

REPORT INFORMATION
  Report Type: 
  Country: US (occurrence: US)
  Receive Date: 20101209
  Receipt Date: 20121003
  Transmission Date: 20130627
  Serious: Yes (Death, Hospitalization)
  Sender: FDA-Public Use
  Company Number: US-MPIJNJ-2010-05985

PATIENT
  Age: 81 Year
  Sex: Male
  Weight: 64.85 kg

DRUGS (20)
  1. VELCADE [Suspect]
     Indication: MULTIPLE MYELOMA
     Dosage: 1.3 mg/m2, Cyclic
     Route: 042
     Dates: start: 20100701, end: 20100804
  2. DOXIL [Suspect]
     Indication: MULTIPLE MYELOMA
  3. NORVASC [Concomitant]
     Indication: PRODUCT USED FOR UNKNOWN INDICATION
     Dosage: 10 mg, qd
     Route: 048
  4. FLOMAX                             /00889901/ [Concomitant]
     Indication: PRODUCT USED FOR UNKNOWN INDICATION
     Dosage: 0.1 mg, UNK
     Route: 048
  5. FLOMAX                             /00889901/ [Concomitant]
     Dosage: 0.4 mg, qd
  6. APRESOLINE [Concomitant]
     Indication: PRODUCT USED FOR UNKNOWN INDICATION
     Dosage: 50 mg, tid
  7. ZESTRIL [Concomitant]
     Indication: PRODUCT USED FOR UNKNOWN INDICATION
     Dosage: 10 mg, qd
     Route: 048
  8. ZESTRIL [Concomitant]
     Dosage: 20 mg, bid
  9. PRILOSEC                           /00661201/ [Concomitant]
     Indication: PRODUCT USED FOR UNKNOWN INDICATION
     Dosage: 20 mg, qd
     Route: 048
     Dates: start: 20100722
  10. CENTRUM SILVER                     /01292501/ [Concomitant]
     Indication: PRODUCT USED FOR UNKNOWN INDICATION
     Dosage: UNK
     Route: 048
  11. AMBIEN [Concomitant]
     Indication: SLEEP DISORDER
     Dosage: 10 mg, prn
  12. MUCINEX [Concomitant]
     Indication: PRODUCT USED FOR UNKNOWN INDICATION
     Dosage: 100 mg, prn
  13. MIRALAX [Concomitant]
     Indication: PRODUCT USED FOR UNKNOWN INDICATION
     Dosage: UNK
  14. LORTAB                             /00607101/ [Concomitant]
     Indication: PRODUCT USED FOR UNKNOWN INDICATION
     Dosage: 10 mg, UNK
     Route: 048
  15. AVODART [Concomitant]
     Indication: PRODUCT USED FOR UNKNOWN INDICATION
     Dosage: 0.5 mg, qd
     Route: 048
  16. CORTEF /00028601/ [Concomitant]
     Indication: PRODUCT USED FOR UNKNOWN INDICATION
     Dosage: 10 mg, UNK
     Route: 048
  17. MS CONTIN [Concomitant]
     Indication: PRODUCT USED FOR UNKNOWN INDICATION
     Dosage: 15 mg, prn
     Route: 048
  18. ATIVAN [Concomitant]
     Indication: NERVOUSNESS
     Dosage: 0.5 mg, prn
     Route: 048
     Dates: start: 20100716
  19. LOPURIN [Concomitant]
     Indication: PRODUCT USED FOR UNKNOWN INDICATION
     Dosage: 100 mg, UNK
     Route: 048
     Dates: start: 20100722
  20. ZOFRAN                             /00955301/ [Concomitant]
     Indication: NAUSEA
     Dosage: 4 mg, prn
     Route: 048
     Dates: start: 20100716

REACTIONS (7)
  - Hyperproteinaemia [Unknown]
  - Aortic aneurysm [Not Recovered/Not Resolved]
  - Cerebral ischaemia [Unknown]
  - Plasma cell myeloma [Fatal]
  - Failure to thrive [Unknown]
  - Asthenia [Unknown]
  - Sepsis [Unknown]
